FAERS Safety Report 24190986 (Version 2)
Quarter: 2024Q3

REPORT INFORMATION
  Report Type: Spontaneous
  Country: US (occurrence: US)
  Receive Date: 20240808
  Receipt Date: 20240829
  Transmission Date: 20241017
  Serious: No
  Sender: CALLIDITAS THERAPEUTICS
  Company Number: US-Calliditas-2024CAL01015

PATIENT
  Age: 62 Year
  Sex: Male

DRUGS (1)
  1. TARPEYO [Suspect]
     Active Substance: BUDESONIDE
     Indication: IgA nephropathy
     Route: 048
     Dates: start: 20240514

REACTIONS (4)
  - Therapeutic response unexpected [Unknown]
  - Weight increased [Unknown]
  - Muscle spasms [Unknown]
  - Pain [Unknown]
